FAERS Safety Report 17515129 (Version 1)
Quarter: 2020Q1

REPORT INFORMATION
  Report Type: Spontaneous
  Country: FR (occurrence: FR)
  Receive Date: 20200309
  Receipt Date: 20200309
  Transmission Date: 20200409
  Serious: Yes (Hospitalization)
  Sender: FDA-Public Use
  Company Number: FR-TEVA-2020-FR-1195629

PATIENT
  Age: 72 Year
  Sex: Female
  Weight: 52 kg

DRUGS (3)
  1. PANTOPRAZOLE [Suspect]
     Active Substance: PANTOPRAZOLE
     Indication: PRODUCT USED FOR UNKNOWN INDICATION
     Route: 048
  2. AMOXICILLINE TRIHYDRATEE [Suspect]
     Active Substance: AMOXICILLIN
     Indication: RESPIRATORY TRACT INFECTION
     Dosage: 3 GRAMS
     Route: 048
     Dates: start: 20190828, end: 20191006
  3. ACIDE CLAVULANIQUE [Suspect]
     Active Substance: CLAVULANIC ACID
     Indication: RESPIRATORY TRACT INFECTION
     Dosage: 250MG
     Route: 048
     Dates: start: 20190828, end: 20191006

REACTIONS (2)
  - Clostridium difficile infection [Recovering/Resolving]
  - Pseudomembranous colitis [Recovering/Resolving]

NARRATIVE: CASE EVENT DATE: 20191006
